FAERS Safety Report 8949586 (Version 2)
Quarter: 2013Q1

REPORT INFORMATION
  Report Type: Spontaneous
  Country: US (occurrence: US)
  Receive Date: 20121206
  Receipt Date: 20130110
  Transmission Date: 20140127
  Serious: No
  Sender: FDA-Public Use
  Company Number: US-009507513-1212USA002163

PATIENT
  Age: 20 Year
  Sex: Female
  Weight: 58.96 kg

DRUGS (6)
  1. CLARITIN CHEWABLE TABLETS [Suspect]
     Indication: ALLERGY TO ANIMAL
     Dosage: 25 MG, ONCE
     Route: 048
     Dates: start: 20121126
  2. CLARITIN CHEWABLE TABLETS [Suspect]
     Indication: OCULAR HYPERAEMIA
  3. CLARITIN CHEWABLE TABLETS [Suspect]
     Indication: EYE PRURITUS
  4. CLARITIN CHEWABLE TABLETS [Suspect]
     Indication: THROAT IRRITATION
  5. CLARITIN CHEWABLE TABLETS [Suspect]
     Indication: EAR PRURITUS
  6. CLARITIN CHEWABLE TABLETS [Suspect]
     Indication: NASAL CONGESTION

REACTIONS (3)
  - Exposure during pregnancy [Unknown]
  - Expired drug administered [Unknown]
  - Overdose [Unknown]
